FAERS Safety Report 22365002 (Version 1)
Quarter: 2023Q2

REPORT INFORMATION
  Report Type: Spontaneous
  Country: GB (occurrence: GB)
  Receive Date: 20230525
  Receipt Date: 20230525
  Transmission Date: 20230721
  Serious: Yes (Other)
  Sender: FDA-Public Use
  Company Number: GB-MHRA-MED-202305151352502650-SRMHC

PATIENT
  Age: 63 Year
  Sex: Male
  Weight: 84 kg

DRUGS (6)
  1. LORATADINE [Suspect]
     Active Substance: LORATADINE
     Indication: Seasonal allergy
     Dosage: 10 MILLIGRAM DAILY;  IN THE MORNING; ;
     Route: 065
  2. ALLOPURINOL [Concomitant]
     Active Substance: ALLOPURINOL
     Indication: Blood urea increased
     Dosage: ALLOPURINOL 100 MG
  3. AMLODIPINE [Concomitant]
     Active Substance: AMLODIPINE BESYLATE
     Indication: Transient ischaemic attack
     Dosage: AMLODOPINE 5MG
  4. ATORVASTATIN [Concomitant]
     Active Substance: ATORVASTATIN
     Indication: Transient ischaemic attack
     Dosage: ATORVASTATIN 80MG
  5. BISOPROLOL [Concomitant]
     Active Substance: BISOPROLOL
     Indication: Transient ischaemic attack
     Dosage: BISOPROPOL 1.25 MG
  6. CLOPIDOGREL [Concomitant]
     Active Substance: CLOPIDOGREL BISULFATE
     Indication: Transient ischaemic attack
     Dosage: CLOPIDOGREL 75MG

REACTIONS (1)
  - Hypertension [Recovered/Resolved]
